FAERS Safety Report 9720265 (Version 1)
Quarter: 2013Q4

REPORT INFORMATION
  Report Type: Spontaneous
  Country: FR (occurrence: FR)
  Receive Date: 20131129
  Receipt Date: 20131129
  Transmission Date: 20140711
  Serious: Yes (Other)
  Sender: FDA-Public Use
  Company Number: CHPA2013FR017724

PATIENT
  Age: 72 Year
  Sex: Female

DRUGS (1)
  1. SCOPODERM TTS [Suspect]
     Indication: MOTION SICKNESS
     Dosage: 1 DF, Q72H
     Route: 061
     Dates: start: 20131028, end: 20131104

REACTIONS (4)
  - Mydriasis [Recovered/Resolved]
  - Somnolence [Recovered/Resolved]
  - Mucosal dryness [Recovered/Resolved]
  - Dizziness [Recovered/Resolved]
